FAERS Safety Report 25051491 (Version 1)
Quarter: 2025Q1

REPORT INFORMATION
  Report Type: Spontaneous
  Country: US (occurrence: US)
  Receive Date: 20250307
  Receipt Date: 20250307
  Transmission Date: 20250409
  Serious: No
  Sender: BRISTOL-MYERS SQUIBB COMPANY
  Company Number: US-BRISTOL-MYERS SQUIBB COMPANY-2025-034788

PATIENT
  Age: 88 Year
  Sex: Male

DRUGS (9)
  1. REVLIMID [Suspect]
     Active Substance: LENALIDOMIDE
     Indication: Plasma cell myeloma
     Dosage: 28 DAYS NO OFF
     Route: 048
     Dates: start: 2021, end: 20250211
  2. AMOXICILLIN [Concomitant]
     Active Substance: AMOXICILLIN
     Dates: start: 20250102, end: 20250116
  3. BENZONATATE [Concomitant]
     Active Substance: BENZONATATE
     Dates: start: 20241202, end: 20241216
  4. CLONAZEPAM [Concomitant]
     Active Substance: CLONAZEPAM
     Dates: end: 20250211
  5. FUROSEMIDE [Concomitant]
     Active Substance: FUROSEMIDE
     Dates: start: 20250103, end: 20250211
  6. HALOPERIDOL [Concomitant]
     Active Substance: HALOPERIDOL
     Dates: start: 20250131, end: 20250211
  7. HYOSCYAMINE [Concomitant]
     Active Substance: HYOSCYAMINE
     Dates: start: 20250131, end: 20250211
  8. MORPHINE SULFATE [Concomitant]
     Active Substance: MORPHINE SULFATE
     Dates: start: 20250131, end: 20250211
  9. LORAZEPAM [Concomitant]
     Active Substance: LORAZEPAM
     Dates: start: 20250131, end: 20250211

REACTIONS (1)
  - Malaise [Unknown]
